FAERS Safety Report 10342630 (Version 1)
Quarter: 2014Q3

REPORT INFORMATION
  Report Type: Spontaneous
  Country: US (occurrence: US)
  Receive Date: 20140725
  Receipt Date: 20140725
  Transmission Date: 20150326
  Serious: No
  Sender: FDA-Public Use
  Company Number: US-009507513-1407USA007697

PATIENT
  Sex: Female

DRUGS (2)
  1. JANUVIA [Suspect]
     Active Substance: SITAGLIPTIN PHOSPHATE
     Indication: TYPE 2 DIABETES MELLITUS
     Dosage: 100MG TABLET; DAILY DOSE: HALF A TABLET IN THE MORNING
     Route: 048
  2. GLIMEPIRIDE. [Suspect]
     Active Substance: GLIMEPIRIDE
     Dosage: 1 DF, IN THE EVENING

REACTIONS (3)
  - Wrong technique in drug usage process [Unknown]
  - Dizziness [Recovering/Resolving]
  - Hypoglycaemia [Recovering/Resolving]
